FAERS Safety Report 11836019 (Version 1)
Quarter: 2015Q4

REPORT INFORMATION
  Report Type: Spontaneous
  Country: US (occurrence: None)
  Receive Date: 20151214
  Receipt Date: 20151214
  Transmission Date: 20160305
  Serious: Yes (Hospitalization)
  Sender: FDA-Public Use
  Company Number: None

PATIENT
  Age: 63 Year
  Sex: Male
  Weight: 92.5 kg

DRUGS (1)
  1. CISPLATIN. [Suspect]
     Active Substance: CISPLATIN
     Dates: end: 20151130

REACTIONS (4)
  - Pain in extremity [None]
  - Gait disturbance [None]
  - Pancytopenia [None]
  - White blood cell count decreased [None]

NARRATIVE: CASE EVENT DATE: 20151207
